FAERS Safety Report 9234477 (Version 1)
Quarter: 2013Q2

REPORT INFORMATION
  Report Type: Spontaneous
  Country: US (occurrence: US)
  Receive Date: 20130416
  Receipt Date: 20130416
  Transmission Date: 20140414
  Serious: No
  Sender: FDA-Public Use
  Company Number: US-BANPHARM-20120193

PATIENT
  Age: 80 Year
  Sex: Male
  Weight: 99.09 kg

DRUGS (1)
  1. ALEVE LIQUID GELS 220 MG [Suspect]
     Indication: PAIN
     Dosage: 1 DF, QD,
     Route: 048
     Dates: start: 20120912, end: 20120920

REACTIONS (1)
  - Muscle spasms [Not Recovered/Not Resolved]
